FAERS Safety Report 20975158 (Version 2)
Quarter: 2022Q3

REPORT INFORMATION
  Report Type: Spontaneous
  Country: US (occurrence: US)
  Receive Date: 20220617
  Receipt Date: 20220801
  Transmission Date: 20221026
  Serious: No
  Sender: FDA-Public Use
  Company Number: US-BRISTOL-MYERS SQUIBB COMPANY-2022-060109

PATIENT
  Age: 60 Year
  Sex: Female

DRUGS (1)
  1. REVLIMID [Suspect]
     Active Substance: LENALIDOMIDE
     Indication: Plasma cell myeloma
     Dosage: EXPIRATION DATE: 31-JAN-2024
     Route: 048
     Dates: start: 20220215

REACTIONS (4)
  - Rash [Unknown]
  - Insomnia [Unknown]
  - Mass [Unknown]
  - Off label use [Unknown]
